FAERS Safety Report 23415173 (Version 2)
Quarter: 2024Q1

REPORT INFORMATION
  Report Type: Report from Study
  Country: MX (occurrence: MX)
  Receive Date: 20240118
  Receipt Date: 20240125
  Transmission Date: 20240409
  Serious: Yes (Other)
  Sender: FDA-Public Use
  Company Number: MX-AstraZeneca-2023A221386

PATIENT
  Age: 34 Day
  Sex: Male
  Weight: 7.3 kg

DRUGS (3)
  1. SYNAGIS [Suspect]
     Active Substance: PALIVIZUMAB
     Indication: Respiratory syncytial virus infection
     Dosage: 0.4ML, MONTHLY
     Route: 030
     Dates: start: 20230925, end: 20230925
  2. SYNAGIS [Suspect]
     Active Substance: PALIVIZUMAB
     Dosage: 1 ML, MONTHLY
     Route: 030
     Dates: start: 20231122, end: 20231122
  3. SYNAGIS [Suspect]
     Active Substance: PALIVIZUMAB
     Dosage: 1.1ML, MONTHLY
     Route: 030
     Dates: start: 20231227, end: 20231227

REACTIONS (10)
  - Laryngitis viral [Recovered/Resolved]
  - Infant irritability [Recovered/Resolved]
  - Injection site pain [Recovered/Resolved]
  - Pain [Recovered/Resolved]
  - Pyrexia [Recovered/Resolved]
  - Incorrect dose administered [Recovered/Resolved]
  - Dose calculation error [Recovered/Resolved]
  - Illness [Recovered/Resolved]
  - Cough [Recovered/Resolved]
  - Nasopharyngitis [Recovered/Resolved]

NARRATIVE: CASE EVENT DATE: 20230925
